FAERS Safety Report 25776418 (Version 1)
Quarter: 2025Q3

REPORT INFORMATION
  Report Type: Spontaneous
  Country: EU (occurrence: EU)
  Receive Date: 20250909
  Receipt Date: 20250909
  Transmission Date: 20251020
  Serious: Yes (Hospitalization)
  Sender: ROCHE
  Company Number: EU-ROCHE-3575599

PATIENT
  Age: 60 Year
  Sex: Female
  Weight: 86.0 kg

DRUGS (35)
  1. POLATUZUMAB VEDOTIN [Suspect]
     Active Substance: POLATUZUMAB VEDOTIN
     Indication: Diffuse large B-cell lymphoma
     Dosage: ON 27/MAY/2024, SHE RECEIVED MOST RECENT DOSE 160 MG OF POLATUZUMAB VEDOTIN.
     Route: 042
     Dates: start: 20240505
  2. RITUXIMAB [Suspect]
     Active Substance: RITUXIMAB
     Indication: Diffuse large B-cell lymphoma
     Dosage: ON 27/MAY/2024, SHE RECEIVED MOST RECENT DOSE 670 MG OF RITUXIMAB.
     Route: 042
     Dates: start: 20240504
  3. CYCLOPHOSPHAMIDE [Suspect]
     Active Substance: CYCLOPHOSPHAMIDE
     Indication: Diffuse large B-cell lymphoma
     Dosage: ON 27/MAY/2024, SHE RECEIVED RECENT DOSE 1350 MG OF CYCLOPHOSPHAMIDE  ?ON 28/MAY/2024, SHE RECEIVED
     Route: 042
     Dates: start: 20240505
  4. DOXORUBICIN [Suspect]
     Active Substance: DOXORUBICIN
     Indication: Diffuse large B-cell lymphoma
     Dosage: ON 28/MAY/2024, SHE RECEIVED MOST RECENT DOSE 90 MG OF DOXORUBICIN.
     Route: 042
     Dates: start: 20240505
  5. PREDNISONE [Suspect]
     Active Substance: PREDNISONE
     Indication: Diffuse large B-cell lymphoma
     Dosage: ON 31/MAY/2024, SHE RECEIVED MOST RECENT DOSE 100 MG OF PREDNISONE.
     Route: 048
     Dates: start: 20240504, end: 20240505
  6. GRANULOCYTE COLONY-STIMULATING FACTOR NOS [Suspect]
     Active Substance: GRANULOCYTE COLONY-STIMULATING FACTOR NOS
     Indication: Product used for unknown indication
     Route: 065
  7. LENOGRASTIM [Suspect]
     Active Substance: LENOGRASTIM
     Indication: Product used for unknown indication
     Route: 065
  8. RINVOQ [Concomitant]
     Active Substance: UPADACITINIB
     Indication: Rheumatoid arthritis
     Route: 048
  9. VENLAFAXINE [Concomitant]
     Active Substance: VENLAFAXINE HYDROCHLORIDE
     Indication: Depression
     Route: 048
  10. POLYETHYLENE GLYCOLS [Concomitant]
     Active Substance: POLYETHYLENE GLYCOLS
     Dosage: 1 OTHER
     Route: 048
     Dates: start: 20240425
  11. OXYCODONE [Concomitant]
     Active Substance: OXYCODONE
     Indication: Pain
     Route: 048
     Dates: start: 20240425, end: 20241023
  12. CELEBREX [Concomitant]
     Active Substance: CELECOXIB
     Indication: Arthralgia
     Route: 048
     Dates: start: 20240425
  13. ACYCLOVIR [Concomitant]
     Active Substance: ACYCLOVIR
     Route: 048
     Dates: start: 20240503
  14. SULFAMETHOXAZOLE\TRIMETHOPRIM [Concomitant]
     Active Substance: SULFAMETHOXAZOLE\TRIMETHOPRIM
     Route: 048
     Dates: start: 20240503
  15. PREDNISOLONE [Concomitant]
     Active Substance: PREDNISOLONE
     Route: 042
     Dates: start: 20240426, end: 20240503
  16. MIRTAZAPINE [Concomitant]
     Active Substance: MIRTAZAPINE
     Indication: Depression
     Route: 048
  17. METAMIZOLE [Concomitant]
     Active Substance: METAMIZOLE
     Indication: Pain
     Route: 048
     Dates: start: 20240426
  18. JONOSTERIL [Concomitant]
     Route: 042
     Dates: start: 20240422, end: 20241119
  19. PIRITRAMIDE [Concomitant]
     Active Substance: PIRITRAMIDE
     Route: 048
     Dates: start: 20240425, end: 20240503
  20. PIPERACILLIN SODIUM\TAZOBACTAM SODIUM [Concomitant]
     Active Substance: PIPERACILLIN SODIUM\TAZOBACTAM SODIUM
     Route: 048
     Dates: start: 20240427, end: 20240506
  21. AMPHO MORONAL SUSP. [Concomitant]
     Route: 048
     Dates: start: 20240426, end: 20240503
  22. FUROSEMIDE [Concomitant]
     Active Substance: FUROSEMIDE
     Route: 042
     Dates: start: 20240506, end: 20240507
  23. ACETAMINOPHEN [Concomitant]
     Active Substance: ACETAMINOPHEN
     Indication: Prophylaxis
     Route: 042
     Dates: start: 20240404, end: 20240505
  24. ACETAMINOPHEN [Concomitant]
     Active Substance: ACETAMINOPHEN
     Route: 042
     Dates: start: 20240505
  25. KALINOR RET. [Concomitant]
     Route: 048
     Dates: start: 20240530, end: 20240605
  26. IBUPROFEN [Concomitant]
     Active Substance: IBUPROFEN
     Indication: Pain
     Route: 048
     Dates: start: 20240528, end: 20240528
  27. ZOPICLONE [Concomitant]
     Active Substance: ZOPICLONE
     Route: 048
     Dates: start: 20240505, end: 20241002
  28. PANTOPRAZOL/PANTOZOL [Concomitant]
     Route: 048
     Dates: start: 20240425
  29. MESNA [Concomitant]
     Active Substance: MESNA
     Route: 048
     Dates: start: 20240505, end: 20240912
  30. PREDNISOLONE [Concomitant]
     Active Substance: PREDNISOLONE
     Route: 042
     Dates: start: 20240504, end: 20240505
  31. PREDNISOLONE [Concomitant]
     Active Substance: PREDNISOLONE
     Route: 042
     Dates: start: 20240426, end: 20240503
  32. ENOXAPARIN SODIUM [Concomitant]
     Active Substance: ENOXAPARIN SODIUM
     Route: 058
     Dates: start: 20240503
  33. FILGRASTIM [Concomitant]
     Active Substance: FILGRASTIM
     Route: 058
     Dates: start: 20240505, end: 20241023
  34. CLEMASTINE FUMARATE [Concomitant]
     Active Substance: CLEMASTINE FUMARATE
     Route: 048
     Dates: start: 20240504, end: 20241002
  35. GRANISETRON HYDROCHLORIDE [Concomitant]
     Active Substance: GRANISETRON HYDROCHLORIDE
     Indication: Prophylaxis of nausea and vomiting
     Route: 048
     Dates: start: 20240505, end: 20240505

REACTIONS (1)
  - Leukocytosis [Recovered/Resolved]

NARRATIVE: CASE EVENT DATE: 20240531
